FAERS Safety Report 8300535-5 (Version None)
Quarter: 2012Q2

REPORT INFORMATION
  Report Type: 
  Country: None (occurrence: None)
  Receive Date: 20120420
  Receipt Date: 20120412
  Transmission Date: 20120825
  Serious: Yes (Hospitalization)
  Sender: FDA-Public Use
  Company Number: GB-BIOGENIDEC-2012BI013263

PATIENT
  Sex: Female

DRUGS (1)
  1. TYSABRI [Suspect]
     Indication: RELAPSING-REMITTING MULTIPLE SCLEROSIS
     Dates: start: 20100701

REACTIONS (6)
  - RETINOPATHY [None]
  - HERPES ZOSTER OPHTHALMIC [None]
  - PARAPARESIS [None]
  - MENINGITIS HERPES [None]
  - HERPES VIRUS INFECTION [None]
  - ATAXIA [None]
